FAERS Safety Report 11063821 (Version 2)
Quarter: 2015Q2

REPORT INFORMATION
  Report Type: Spontaneous
  Country: US (occurrence: US)
  Receive Date: 20150424
  Receipt Date: 20150518
  Transmission Date: 20150821
  Serious: Yes (Other)
  Sender: FDA-Public Use
  Company Number: US-SHIRE-US201503487

PATIENT
  Sex: Female
  Weight: 81.63 kg

DRUGS (9)
  1. SYNTHROID [Concomitant]
     Active Substance: LEVOTHYROXINE SODIUM
     Indication: HYPOTHYROIDISM
     Dosage: UNK, UNKNOWN
     Route: 065
  2. ADDERALL XR [Suspect]
     Active Substance: AMPHETAMINE ASPARTATE\AMPHETAMINE SULFATE\DEXTROAMPHETAMINE SACCHARATE\DEXTROAMPHETAMINE SULFATE
     Dosage: 30 MG, 2X/DAY:BID
     Route: 048
  3. ADDERALL XR [Suspect]
     Active Substance: AMPHETAMINE ASPARTATE\AMPHETAMINE SULFATE\DEXTROAMPHETAMINE SACCHARATE\DEXTROAMPHETAMINE SULFATE
     Dosage: 30 MG, 2X/DAY:BID
     Route: 048
     Dates: start: 2007, end: 2009
  4. EFFEXOR [Concomitant]
     Active Substance: VENLAFAXINE HYDROCHLORIDE
     Indication: DEPRESSION
     Dosage: UNK (^THE HIGHEST DOSE^), 1X/DAY:QD
     Route: 048
  5. ADDERALL XR [Suspect]
     Active Substance: AMPHETAMINE ASPARTATE\AMPHETAMINE SULFATE\DEXTROAMPHETAMINE SACCHARATE\DEXTROAMPHETAMINE SULFATE
     Indication: ATTENTION DEFICIT/HYPERACTIVITY DISORDER
     Dosage: UNK (^THE LOWEST DOSE^), 1X/DAY:QD
     Route: 048
  6. ADDERALL XR [Suspect]
     Active Substance: AMPHETAMINE ASPARTATE\AMPHETAMINE SULFATE\DEXTROAMPHETAMINE SACCHARATE\DEXTROAMPHETAMINE SULFATE
     Dosage: UNK (^THE LOWEST DOSE^), 2X/DAY:BID
     Route: 048
  7. ADDERALL XR [Suspect]
     Active Substance: AMPHETAMINE ASPARTATE\AMPHETAMINE SULFATE\DEXTROAMPHETAMINE SACCHARATE\DEXTROAMPHETAMINE SULFATE
     Dosage: UNK, 2X/DAY:BID (TITRATED THROUGH UNKNOWN NUMBER OF DOSE INCREASES)
     Route: 048
  8. ARMOUR THYROID [Concomitant]
     Active Substance: THYROID, PORCINE\THYROID, UNSPECIFIED
     Indication: HYPOTHYROIDISM
     Dosage: OTHER, 60-90 MCG 1X/DAY:QD (DEPENDING ON LEVELS)
     Route: 048
  9. OMEPRAZOLE. [Concomitant]
     Active Substance: OMEPRAZOLE
     Indication: PRODUCT USED FOR UNKNOWN INDICATION
     Dosage: UNK, UNKNOWN
     Route: 065

REACTIONS (4)
  - Inappropriate schedule of drug administration [Recovered/Resolved]
  - Drug dose omission [Recovered/Resolved]
  - Drug withdrawal syndrome [Recovered/Resolved]
  - Prescribed overdose [Recovered/Resolved]
